FAERS Safety Report 19317573 (Version 4)
Quarter: 2021Q3

REPORT INFORMATION
  Report Type: Spontaneous
  Country: US (occurrence: US)
  Receive Date: 20210527
  Receipt Date: 20210705
  Transmission Date: 20211014
  Serious: Yes (Death, Other)
  Sender: FDA-Public Use
  Company Number: US-KARYOPHARM-2021KPT000632

PATIENT

DRUGS (2)
  1. BEVACIZUMAB. [Concomitant]
     Active Substance: BEVACIZUMAB
  2. XPOVIO [Suspect]
     Active Substance: SELINEXOR
     Indication: GLIOMA
     Dosage: 40 MG, WEEKLY
     Route: 048
     Dates: start: 20210424, end: 20210601

REACTIONS (8)
  - Glioma [Fatal]
  - Nausea [Recovering/Resolving]
  - Off label use [Unknown]
  - Somnolence [Unknown]
  - Asthenia [Not Recovered/Not Resolved]
  - Seizure [Unknown]
  - White blood cell count decreased [Not Recovered/Not Resolved]
  - Platelet count decreased [Unknown]

NARRATIVE: CASE EVENT DATE: 2021
